FAERS Safety Report 9420125 (Version 1)
Quarter: 2013Q3

REPORT INFORMATION
  Report Type: Spontaneous
  Country: US (occurrence: None)
  Receive Date: 20130724
  Receipt Date: 20130724
  Transmission Date: 20140515
  Serious: Yes (Other)
  Sender: FDA-Public Use
  Company Number: None

PATIENT
  Age: 10 Year
  Sex: Male
  Weight: 28.5 kg

DRUGS (7)
  1. VORINOSTAT [Suspect]
     Indication: NEUROBLASTOMA
     Dosage: 170 MG  ORAL
     Route: 048
     Dates: start: 20101116, end: 20101129
  2. MIBG 12 MCI /KG [Suspect]
     Dosage: 325 MCI
     Dates: start: 20101118, end: 20101118
  3. BACTRIM [Concomitant]
  4. DILAUDID [Concomitant]
  5. FENTANYL PATCH [Concomitant]
  6. CELEXA [Concomitant]
  7. MIRALAX [Concomitant]

REACTIONS (5)
  - White blood cell count decreased [None]
  - Neutrophil count decreased [None]
  - Haemoglobin decreased [None]
  - Platelet count decreased [None]
  - Myelodysplastic syndrome [None]
